FAERS Safety Report 7770757-0 (Version None)
Quarter: 2011Q3

REPORT INFORMATION
  Report Type: 
  Country: None (occurrence: None)
  Receive Date: 20110922
  Receipt Date: 20101022
  Transmission Date: 20111222
  Serious: No
  Sender: FDA-Public Use
  Company Number: US-ASTRAZENECA-2010SE50299

PATIENT
  Age: 47 Year
  Sex: Female
  Weight: 89.8 kg

DRUGS (6)
  1. SEROQUEL XR [Suspect]
     Indication: INSOMNIA
     Route: 048
     Dates: start: 20100101
  2. SEROQUEL XR [Suspect]
     Indication: POST-TRAUMATIC STRESS DISORDER
     Route: 048
     Dates: start: 20100101
  3. SEROQUEL XR [Suspect]
     Indication: TACHYPHRENIA
     Route: 048
     Dates: start: 20100101
  4. SEROQUEL XR [Suspect]
     Route: 048
  5. SEROQUEL XR [Suspect]
     Route: 048
  6. SEROQUEL XR [Suspect]
     Route: 048

REACTIONS (3)
  - FOOD CRAVING [None]
  - WEIGHT INCREASED [None]
  - FLUID RETENTION [None]
